FAERS Safety Report 8898721 (Version 5)
Quarter: 2013Q1

REPORT INFORMATION
  Report Type: Spontaneous
  Country: US (occurrence: US)
  Receive Date: 20121109
  Receipt Date: 20130327
  Transmission Date: 20140127
  Serious: Yes (Hospitalization, Disabling, Other)
  Sender: FDA-Public Use
  Company Number: US-009507513-1211USA004330

PATIENT
  Sex: Female
  Weight: 37.64 kg

DRUGS (1)
  1. FOSAMAX [Suspect]
     Indication: OSTEOPOROSIS
     Dosage: 70 MG, QW
     Route: 048
     Dates: start: 20030604, end: 20040728

REACTIONS (51)
  - Femur fracture [Unknown]
  - Open reduction of fracture [Unknown]
  - Clavicle fracture [Not Recovered/Not Resolved]
  - Fracture nonunion [Unknown]
  - Bone graft [Unknown]
  - Surgery [Unknown]
  - Gastric cancer [Not Recovered/Not Resolved]
  - Gastrectomy [Unknown]
  - Laceration [Unknown]
  - Road traffic accident [Unknown]
  - Fall [Unknown]
  - Ligament sprain [Unknown]
  - Catheterisation venous [Unknown]
  - Aspiration pleural cavity [Unknown]
  - Patella fracture [Unknown]
  - Lumbar vertebral fracture [Unknown]
  - Rib fracture [Unknown]
  - Peptic ulcer [Unknown]
  - Radiotherapy [Unknown]
  - Chemotherapy [Unknown]
  - White blood cell count increased [Unknown]
  - Endotracheal intubation complication [Unknown]
  - Endotracheal intubation complication [Unknown]
  - Pernicious anaemia [Unknown]
  - Bacterial infection [Unknown]
  - Anxiety [Unknown]
  - Thermal burn [Unknown]
  - Skin fissures [Unknown]
  - Skin irritation [Unknown]
  - Vaginal infection [Unknown]
  - Bacterial infection [Unknown]
  - Angiopathy [Unknown]
  - Vitamin B12 decreased [Unknown]
  - Choking sensation [Unknown]
  - Depression [Not Recovered/Not Resolved]
  - Anxiety [Not Recovered/Not Resolved]
  - Panic attack [Unknown]
  - Obsessive-compulsive disorder [Unknown]
  - Pain [Unknown]
  - Cachexia [Unknown]
  - Rotator cuff syndrome [Unknown]
  - Abnormal loss of weight [Unknown]
  - Calcium deficiency [Unknown]
  - Gastritis [Unknown]
  - Rash [Unknown]
  - Diarrhoea [Unknown]
  - Vomiting [Unknown]
  - Nausea [Unknown]
  - Pain in extremity [Unknown]
  - Abdominal discomfort [Unknown]
  - Diarrhoea [Unknown]
